FAERS Safety Report 6982527-1 (Version None)
Quarter: 2010Q3

REPORT INFORMATION
  Report Type: 
  Country: None (occurrence: None)
  Receive Date: 20100914
  Receipt Date: 20100126
  Transmission Date: 20110219
  Serious: Yes (Other)
  Sender: FDA-Public Use
  Company Number: US-PFIZER INC-2010012207

PATIENT
  Sex: Female
  Weight: 65.77 kg

DRUGS (8)
  1. LYRICA [Suspect]
     Indication: FIBROMYALGIA
     Dosage: 150 MG, 2X/DAY
     Dates: start: 20091101, end: 20091201
  2. XANAX [Concomitant]
     Indication: ANXIETY
     Dosage: 2 MG, 4X/DAY
  3. FLEXERIL [Concomitant]
     Indication: MUSCLE SPASMS
     Dosage: UNK
  4. PROZAC [Concomitant]
     Dosage: 20 MG, 2X/DAY
  5. LORTAB [Concomitant]
     Indication: MULTIPLE FRACTURES
     Dosage: 10 MG, UNK
  6. LORTAB [Concomitant]
     Indication: SURGERY
  7. ZANTAC [Concomitant]
     Dosage: 150 MG, 2X/DAY
  8. TRAZODONE [Concomitant]
     Indication: SLEEP DISORDER
     Dosage: 150 MG, 1X/DAY

REACTIONS (5)
  - AMNESIA [None]
  - CONFUSIONAL STATE [None]
  - DEPRESSION [None]
  - FEELING ABNORMAL [None]
  - SUICIDAL IDEATION [None]
